FAERS Safety Report 14873999 (Version 1)
Quarter: 2018Q2

REPORT INFORMATION
  Report Type: Spontaneous
  Country: US (occurrence: US)
  Receive Date: 20180510
  Receipt Date: 20180510
  Transmission Date: 20180711
  Serious: No
  Sender: FDA-Public Use
  Company Number: US-PERRIGO-17US025791

PATIENT
  Age: 22 Year
  Sex: Female
  Weight: 51.25 kg

DRUGS (5)
  1. MICONAZOLE 3 COMBINATION PACK [Suspect]
     Active Substance: MICONAZOLE NITRATE
     Indication: VULVOVAGINAL MYCOTIC INFECTION
  2. MICONAZOLE 3 COMBINATION PACK [Suspect]
     Active Substance: MICONAZOLE NITRATE
     Indication: VULVOVAGINAL DISCOMFORT
     Dosage: 1 APPLICATION, SINGLE
     Route: 061
     Dates: start: 20170807, end: 20170807
  3. MICONAZOLE 3 COMBINATION PACK [Suspect]
     Active Substance: MICONAZOLE NITRATE
     Indication: VULVOVAGINAL SWELLING
     Dosage: 200 MG, SINGLE
     Route: 067
     Dates: start: 20170807, end: 20170807
  4. MICONAZOLE 3 COMBINATION PACK [Suspect]
     Active Substance: MICONAZOLE NITRATE
     Indication: VULVOVAGINAL ERYTHEMA
  5. INTRAUTERINE CONTRACEPTIVE DEVICE [Concomitant]
     Active Substance: COPPER
     Indication: CONTRACEPTION
     Dosage: UNK
     Route: 015
     Dates: start: 2016

REACTIONS (2)
  - Vulvovaginal discomfort [Recovered/Resolved]
  - Dysuria [Recovered/Resolved]

NARRATIVE: CASE EVENT DATE: 20170807
